FAERS Safety Report 9283291 (Version 1)
Quarter: 2013Q2

REPORT INFORMATION
  Report Type: Spontaneous
  Country: US (occurrence: US)
  Receive Date: 20130510
  Receipt Date: 20130510
  Transmission Date: 20140414
  Serious: No
  Sender: FDA-Public Use
  Company Number: US-GLAXOSMITHKLINE-A0994981A

PATIENT
  Age: 50 Year
  Sex: Female
  Weight: 90.5 kg

DRUGS (9)
  1. TYKERB [Suspect]
     Indication: BREAST CANCER
     Dosage: 1250MG PER DAY
     Route: 048
     Dates: start: 20120319
  2. PROCRIT [Concomitant]
     Dosage: 40000UNIT WEEKLY
     Route: 058
  3. PANTOPRAZOLE [Concomitant]
  4. AMLODIPINE [Concomitant]
  5. CALCITROL [Concomitant]
  6. PLAVIX [Concomitant]
  7. CRESTOR [Concomitant]
  8. METOPROLOL [Concomitant]
  9. SUCRALFATE [Concomitant]

REACTIONS (1)
  - Diarrhoea [Recovering/Resolving]
